FAERS Safety Report 4878638-7 (Version None)
Quarter: 2006Q1

REPORT INFORMATION
  Report Type: 
  Country: None (occurrence: None)
  Receive Date: 20060110
  Receipt Date: 20060110
  Transmission Date: 20060701
  Serious: Yes (Death, Hospitalization)
  Sender: FDA-Public Use
  Company Number: None

PATIENT
  Sex: Female
  Weight: 39 kg

DRUGS (7)
  1. CYTARABINE [Suspect]
     Indication: ACUTE MYELOID LEUKAEMIA
     Dosage: SEE IMAGE
     Route: 042
     Dates: start: 20051130, end: 20051204
  2. ACYCLOVIR [Concomitant]
  3. CANCIDAS [Concomitant]
  4. PREDNISONE [Concomitant]
  5. PROTONIX [Concomitant]
  6. CALCIUM GLUCONATE [Concomitant]
  7. MAGNESIUM OXIDE [Concomitant]

REACTIONS (2)
  - PSEUDOMONAL SEPSIS [None]
  - RESPIRATORY FAILURE [None]
